FAERS Safety Report 12850443 (Version 1)
Quarter: 2016Q4

REPORT INFORMATION
  Report Type: Spontaneous
  Country: US (occurrence: US)
  Receive Date: 20161014
  Receipt Date: 20161014
  Transmission Date: 20170207
  Serious: No
  Sender: FDA-Public Use
  Company Number: US-BAYER-2016-198647

PATIENT
  Age: 78 Year
  Sex: Male
  Weight: 78.5 kg

DRUGS (2)
  1. MAGNESIUM CITRATE. [Concomitant]
     Active Substance: MAGNESIUM CITRATE
  2. MIRALAX [Suspect]
     Active Substance: POLYETHYLENE GLYCOL 3350
     Indication: GASTROINTESTINAL DISORDER
     Dosage: 1 DF, UNK
     Route: 048
     Dates: start: 201601

REACTIONS (3)
  - Diarrhoea [Recovered/Resolved with Sequelae]
  - Drug ineffective [None]
  - Abnormal faeces [Recovered/Resolved with Sequelae]

NARRATIVE: CASE EVENT DATE: 201601
